FAERS Safety Report 6339500-6 (Version None)
Quarter: 2009Q3

REPORT INFORMATION
  Report Type: 
  Country: None (occurrence: None)
  Receive Date: 20090827
  Receipt Date: 20090626
  Transmission Date: 20100115
  Serious: No
  Sender: FDA-Public Use
  Company Number: 001191

PATIENT
  Sex: Male
  Weight: 65.9 kg

DRUGS (6)
  1. LACOSAMIDE [Suspect]
     Indication: CONVULSION
     Dosage: (100 MG BID ORAL), (50 MG BID ORAL)
     Route: 048
     Dates: start: 20090615, end: 20090622
  2. LACOSAMIDE [Suspect]
     Indication: CONVULSION
     Dosage: (100 MG BID ORAL), (50 MG BID ORAL)
     Route: 048
     Dates: start: 20090622, end: 20090622
  3. CARBATROL [Concomitant]
  4. LAMICTAL [Concomitant]
  5. DEPAKOTE [Concomitant]
  6. THYROID TAB [Concomitant]

REACTIONS (3)
  - COMPLEX PARTIAL SEIZURES [None]
  - HEADACHE [None]
  - NECK PAIN [None]
